FAERS Safety Report 7002932-7 (Version None)
Quarter: 2010Q3

REPORT INFORMATION
  Report Type: 
  Country: None (occurrence: None)
  Receive Date: 20100920
  Receipt Date: 20100914
  Transmission Date: 20110219
  Serious: No
  Sender: FDA-Public Use
  Company Number: US-TEVA-248628USA

PATIENT

DRUGS (2)
  1. AZILECT [Suspect]
     Indication: PARKINSON'S DISEASE
  2. SINEMET [Concomitant]
     Indication: PARKINSON'S DISEASE

REACTIONS (1)
  - OBSESSIVE-COMPULSIVE DISORDER [None]
